FAERS Safety Report 5476954-1 (Version None)
Quarter: 2007Q3

REPORT INFORMATION
  Report Type: 
  Country: None (occurrence: None)
  Receive Date: 20070831
  Receipt Date: 20070518
  Transmission Date: 20080115
  Serious: Yes (Hospitalization)
  Sender: FDA-Public Use
  Company Number: PHEH2007US06941

PATIENT
  Age: 54 Year
  Sex: Female

DRUGS (4)
  1. EXJADE [Suspect]
     Indication: IRON OVERLOAD
     Dosage: 1500 MG, QD, ORAL 500 MG, QD, ORAL 1000 MG, QD, ORAL
     Route: 048
     Dates: start: 20060814, end: 20060905
  2. EXJADE [Suspect]
     Indication: IRON OVERLOAD
     Dosage: 1500 MG, QD, ORAL 500 MG, QD, ORAL 1000 MG, QD, ORAL
     Route: 048
     Dates: start: 20070122, end: 20070301
  3. EXJADE [Suspect]
     Indication: IRON OVERLOAD
     Dosage: 1500 MG, QD, ORAL 500 MG, QD, ORAL 1000 MG, QD, ORAL
     Route: 048
     Dates: start: 20070301
  4. REVLIMID [Concomitant]

REACTIONS (5)
  - DIARRHOEA [None]
  - DISEASE PROGRESSION [None]
  - DRUG TOXICITY [None]
  - MYELODYSPLASTIC SYNDROME [None]
  - RASH ERYTHEMATOUS [None]
